FAERS Safety Report 13838128 (Version 1)
Quarter: 2017Q3

REPORT INFORMATION
  Report Type: Report from Study
  Country: US (occurrence: US)
  Receive Date: 20170807
  Receipt Date: 20170807
  Transmission Date: 20171127
  Serious: Yes (Other)
  Sender: FDA-Public Use
  Company Number: PHEH2017US023834

PATIENT
  Sex: Female

DRUGS (1)
  1. AFINITOR [Suspect]
     Active Substance: EVEROLIMUS
     Indication: PRODUCT USED FOR UNKNOWN INDICATION
     Dosage: UNK
     Route: 065

REACTIONS (7)
  - Blood pressure increased [Unknown]
  - Blood count abnormal [Unknown]
  - Rash generalised [Unknown]
  - Heart rate increased [Unknown]
  - Blood glucose increased [Unknown]
  - Pyrexia [Unknown]
  - Decreased immune responsiveness [Unknown]
